FAERS Safety Report 23926707 (Version 1)
Quarter: 2024Q2

REPORT INFORMATION
  Report Type: Spontaneous
  Country: JP (occurrence: None)
  Receive Date: 20240531
  Receipt Date: 20240531
  Transmission Date: 20240716
  Serious: Yes (Other)
  Sender: FDA-Public Use
  Company Number: 2024A012050

PATIENT
  Age: 64 Year
  Sex: Female

DRUGS (8)
  1. DAPAGLIFLOZIN [Suspect]
     Active Substance: DAPAGLIFLOZIN
     Indication: Chronic kidney disease
     Dosage: DOSE UNKNOWN
     Route: 048
     Dates: start: 20220308, end: 20220712
  2. DAPAGLIFLOZIN [Suspect]
     Active Substance: DAPAGLIFLOZIN
     Indication: Chronic kidney disease
     Dosage: DOSE UNKNOWN
     Route: 048
     Dates: start: 20220802, end: 20220823
  3. CRESTOR [Concomitant]
     Active Substance: ROSUVASTATIN CALCIUM
     Route: 048
     Dates: start: 20220308
  4. ROCALTROL [Concomitant]
     Active Substance: CALCITRIOL
     Route: 048
     Dates: start: 20220308
  5. AMLODIPINE [Concomitant]
     Active Substance: AMLODIPINE BESYLATE
     Route: 048
     Dates: start: 20220308, end: 20220530
  6. CANDESARTAN CILEXETIL [Concomitant]
     Active Substance: CANDESARTAN CILEXETIL
     Route: 048
     Dates: start: 20220531, end: 20220802
  7. ALESION [Concomitant]
     Active Substance: EPINASTINE HYDROCHLORIDE
     Route: 048
     Dates: start: 20220308
  8. CELESTAMINE [Concomitant]
     Active Substance: BETAMETHASONE\DEXCHLORPHENIRAMINE MALEATE
     Route: 048
     Dates: start: 20220308

REACTIONS (4)
  - Electrocardiogram ST segment abnormal [Unknown]
  - Hypotension [Unknown]
  - Chest discomfort [Unknown]
  - Tachycardia [Unknown]

NARRATIVE: CASE EVENT DATE: 20220531
